FAERS Safety Report 25450935 (Version 1)
Quarter: 2025Q2

REPORT INFORMATION
  Report Type: Spontaneous
  Country: US (occurrence: None)
  Receive Date: 20250618
  Receipt Date: 20250618
  Transmission Date: 20250716
  Serious: Yes (Other)
  Sender: FDA-CTU
  Company Number: None

PATIENT
  Age: 62 Year
  Sex: Female
  Weight: 82.35 kg

DRUGS (5)
  1. GABAPENTIN [Suspect]
     Active Substance: GABAPENTIN
     Indication: Restless legs syndrome
     Dosage: OTHER QUANTITY : 1 CAPSULE(S);?FREQUENCY : DAILY;?
     Route: 048
  2. FETZIMA [Concomitant]
     Active Substance: LEVOMILNACIPRAN HYDROCHLORIDE
  3. ZONISAMIDE [Concomitant]
     Active Substance: ZONISAMIDE
  4. Armore [Concomitant]
  5. Magnesium glycerinate [Concomitant]

REACTIONS (3)
  - Brain fog [None]
  - Balance disorder [None]
  - Insomnia [None]

NARRATIVE: CASE EVENT DATE: 20250523
